FAERS Safety Report 8351414-9 (Version None)
Quarter: 2012Q2

REPORT INFORMATION
  Report Type: 
  Country: None (occurrence: None)
  Receive Date: 20120510
  Receipt Date: 20120509
  Transmission Date: 20120825
  Serious: Yes (Death, Hospitalization)
  Sender: FDA-Public Use
  Company Number: GB-ROCHE-1067255

PATIENT
  Age: 43 Year
  Sex: Male
  Weight: 68 kg

DRUGS (7)
  1. PEGASYS [Suspect]
     Indication: HEPATITIS C
     Route: 058
     Dates: start: 20120418, end: 20120421
  2. BECLOMETHASONE DIPROPIONATE [Concomitant]
     Indication: ASTHMA
     Route: 045
     Dates: end: 20120421
  3. RIBAVIRIN [Suspect]
     Indication: HEPATITIS C
     Route: 048
     Dates: start: 20120418, end: 20120421
  4. DIAZEPAM [Concomitant]
     Indication: ANXIETY
     Route: 048
     Dates: end: 20120421
  5. OMEPRAZOLE [Concomitant]
     Route: 048
     Dates: end: 20120421
  6. TELAPREVIR [Suspect]
     Indication: HEPATITIS C
     Route: 048
     Dates: start: 20120418, end: 20120421
  7. SALBUTAMOL INHALER [Concomitant]
     Indication: ASTHMA
     Route: 045
     Dates: end: 20120421

REACTIONS (2)
  - BRAIN INJURY [None]
  - CARDIAC ARREST [None]
